FAERS Safety Report 10776113 (Version 6)
Quarter: 2017Q4

REPORT INFORMATION
  Report Type: Spontaneous
  Country: US (occurrence: US)
  Receive Date: 20150209
  Receipt Date: 20171221
  Transmission Date: 20180320
  Serious: Yes (Other)
  Sender: FDA-Public Use
  Company Number: US-PFIZER INC-2015046609

PATIENT
  Age: 51 Year
  Sex: Female

DRUGS (7)
  1. NEURONTIN [Suspect]
     Active Substance: GABAPENTIN
     Indication: INTERVERTEBRAL DISC PROTRUSION
  2. NEURONTIN [Suspect]
     Active Substance: GABAPENTIN
     Indication: COMPRESSION FRACTURE
  3. NEURONTIN [Suspect]
     Active Substance: GABAPENTIN
     Indication: NEURALGIA
     Dosage: 600 MG, 2X/DAY
     Route: 048
     Dates: start: 201307, end: 201409
  4. NEURONTIN [Suspect]
     Active Substance: GABAPENTIN
     Indication: PAIN MANAGEMENT
  5. NEURONTIN [Suspect]
     Active Substance: GABAPENTIN
     Indication: INTERVERTEBRAL DISC DEGENERATION
  6. NEURONTIN [Suspect]
     Active Substance: GABAPENTIN
     Indication: NERVE COMPRESSION
  7. NEURONTIN [Suspect]
     Active Substance: GABAPENTIN
     Indication: SCIATICA

REACTIONS (18)
  - Tooth fracture [Unknown]
  - Product use in unapproved indication [Unknown]
  - Dysphagia [Unknown]
  - Osteopenia [Recovered/Resolved with Sequelae]
  - Oropharyngeal pain [Unknown]
  - Condition aggravated [Not Recovered/Not Resolved]
  - Bone loss [Unknown]
  - Depression [Unknown]
  - Candida infection [Unknown]
  - Foot fracture [Unknown]
  - Foot fracture [Recovered/Resolved with Sequelae]
  - Pain in extremity [Not Recovered/Not Resolved]
  - Teeth brittle [Recovered/Resolved with Sequelae]
  - Hypersensitivity [Unknown]
  - Rash [Not Recovered/Not Resolved]
  - Fungal infection [Unknown]
  - Pharyngeal oedema [Unknown]
  - Eating disorder [Unknown]

NARRATIVE: CASE EVENT DATE: 201307
